FAERS Safety Report 23445045 (Version 1)
Quarter: 2024Q1

REPORT INFORMATION
  Report Type: Spontaneous
  Country: US (occurrence: US)
  Receive Date: 20240125
  Receipt Date: 20240125
  Transmission Date: 20240410
  Serious: Yes (Other)
  Sender: FDA-Public Use
  Company Number: US-BRISTOL-MYERS SQUIBB COMPANY-2024-012536

PATIENT
  Age: 83 Year
  Sex: Female
  Weight: 95.71 kg

DRUGS (2)
  1. POMALYST [Suspect]
     Active Substance: POMALIDOMIDE
     Indication: Plasma cell myeloma
     Dosage: DAILY DAYS 1-21 EVERY 28 DAYS
     Route: 048
     Dates: start: 20210517
  2. POMALYST [Suspect]
     Active Substance: POMALIDOMIDE
     Dosage: DAILY DAYS 1-21 EVERY 28 DAYS
     Dates: start: 20230926

REACTIONS (1)
  - Cerebrovascular accident [Unknown]

NARRATIVE: CASE EVENT DATE: 20230201
